FAERS Safety Report 9523860 (Version 1)
Quarter: 2013Q1

REPORT INFORMATION
  Report Type: Spontaneous
  Country: US (occurrence: None)
  Receive Date: 20130305
  Receipt Date: 20130305
  Transmission Date: 20140127
  Serious: Yes (Hospitalization)
  Sender: FDA-Public Use
  Company Number: 163-21880-12020416

PATIENT
  Age: 53 Year
  Sex: Female

DRUGS (2)
  1. REVLIMID (LENALIDOMIDE) (25 MILLIGRAM, CAPSULES) [Suspect]
     Indication: AMYLOIDOSIS
     Dosage: 25 MG, DAILY X 14 DAYS/OFF 7 DAYS, PO
     Route: 048
     Dates: start: 20110716, end: 20111209
  2. COUMADIN (WARFARIN SODIUM) (UNKNOWN) [Concomitant]

REACTIONS (2)
  - Pneumonia [None]
  - Pulmonary embolism [None]
